FAERS Safety Report 21224013 (Version 1)
Quarter: 2022Q3

REPORT INFORMATION
  Report Type: Spontaneous
  Country: US (occurrence: US)
  Receive Date: 20220817
  Receipt Date: 20220817
  Transmission Date: 20221027
  Serious: No
  Sender: FDA-Public Use
  Company Number: US-SA-2022MK000032

PATIENT
  Age: 30 Year
  Sex: Male
  Weight: 105.78 kg

DRUGS (5)
  1. AFREZZA [Suspect]
     Active Substance: INSULIN HUMAN
     Indication: Type 2 diabetes mellitus
     Dosage: 8-24 UNITS BEFORE MEALS
     Dates: start: 2020
  2. AFREZZA [Suspect]
     Active Substance: INSULIN HUMAN
     Dosage: 8-24 UNITS BEFORE MEALS
  3. TRESIBA [Concomitant]
     Active Substance: INSULIN DEGLUDEC
     Indication: Type 2 diabetes mellitus
     Route: 058
  4. SYNJARDY [Concomitant]
     Active Substance: EMPAGLIFLOZIN\METFORMIN HYDROCHLORIDE
     Indication: Type 2 diabetes mellitus
     Dosage: 1.5/1000 MG
  5. LISINOPRIL [Concomitant]
     Active Substance: LISINOPRIL
     Indication: Hypertension
     Route: 048

REACTIONS (3)
  - Blood glucose increased [Unknown]
  - Product residue present [Unknown]
  - Incorrect dose administered by device [Unknown]
